FAERS Safety Report 16749391 (Version 3)
Quarter: 2019Q3

REPORT INFORMATION
  Report Type: Spontaneous
  Country: US (occurrence: US)
  Receive Date: 20190828
  Receipt Date: 20190926
  Transmission Date: 20191005
  Serious: No
  Sender: FDA-Public Use
  Company Number: US-UNITED THERAPEUTICS-UNT-2019-014271

PATIENT
  Age: 72 Year
  Sex: Female
  Weight: 99.77 kg

DRUGS (3)
  1. ORENITRAM [Suspect]
     Active Substance: TREPROSTINIL
     Dosage: 0.375 MG, TID
     Route: 048
  2. ORENITRAM [Suspect]
     Active Substance: TREPROSTINIL
     Indication: PULMONARY ARTERIAL HYPERTENSION
     Dosage: 0.125 MG, TID
     Route: 048
     Dates: start: 20190816
  3. ORENITRAM [Suspect]
     Active Substance: TREPROSTINIL
     Dosage: 0.75 MG, TID
     Route: 048

REACTIONS (7)
  - Fatigue [Recovered/Resolved]
  - Headache [Not Recovered/Not Resolved]
  - Abdominal pain upper [Recovering/Resolving]
  - Nausea [Recovering/Resolving]
  - Back pain [Unknown]
  - Feeling cold [Recovered/Resolved]
  - Neck pain [Unknown]

NARRATIVE: CASE EVENT DATE: 201908
